FAERS Safety Report 4716601-7 (Version None)
Quarter: 2005Q3

REPORT INFORMATION
  Report Type: 
  Country: None (occurrence: None)
  Receive Date: 20050713
  Receipt Date: 20050704
  Transmission Date: 20060218
  Serious: Yes (Hospitalization)
  Sender: FDA-Public Use
  Company Number: DEU-2005-0001230

PATIENT
  Age: 41 Year
  Sex: Male
  Weight: 112 kg

DRUGS (6)
  1. OXYGESIC 20 MG (OXYODONE HYDROCHLORIDE) CR TABLET [Suspect]
     Indication: PAIN
     Dosage: 20 MG, BID, ORAL
     Route: 048
     Dates: start: 20041001, end: 20050102
  2. ANTIEPILEPTICS [Suspect]
     Indication: PAIN
     Dosage: SEE IMAGE
     Route: 048
     Dates: start: 20050103, end: 20050114
  3. ANTIEPILEPTICS [Suspect]
     Indication: PAIN
     Dosage: SEE IMAGE
     Route: 048
     Dates: start: 20050103, end: 20050114
  4. REMERGIL (MIRTAZAPINE) [Concomitant]
  5. GLUCOPHAGE [Concomitant]
  6. NOVONORM (REPAGLINIDE0 [Concomitant]

REACTIONS (7)
  - CHILLS [None]
  - DYSPNOEA [None]
  - FEELING COLD [None]
  - HYPERHIDROSIS [None]
  - MUSCLE SPASMS [None]
  - PYREXIA [None]
  - TREMOR [None]
